FAERS Safety Report 22032167 (Version 1)
Quarter: 2023Q1

REPORT INFORMATION
  Report Type: Spontaneous
  Country: IT (occurrence: IT)
  Receive Date: 20230224
  Receipt Date: 20230224
  Transmission Date: 20230417
  Serious: Yes (Other)
  Sender: FDA-Public Use
  Company Number: None

PATIENT
  Age: 14 Year
  Sex: Female

DRUGS (7)
  1. CLONAZEPAM [Suspect]
     Active Substance: CLONAZEPAM
     Indication: Epilepsy
     Route: 048
  2. VALPROIC ACID [Suspect]
     Active Substance: VALPROIC ACID
     Indication: Epilepsy
     Dosage: 500MG (ORE 8) + 600MG (ORE 20)
     Route: 048
  3. CEFIXIME [Suspect]
     Active Substance: CEFIXIME
     Dosage: DAILY DOSE: 5 MILLILITRE
     Route: 048
  4. LANSOPRAZOLE [Suspect]
     Active Substance: LANSOPRAZOLE
     Dosage: DAILY DOSE: 20 MILLILITRE
     Route: 048
  5. SABRIL [Suspect]
     Active Substance: VIGABATRIN
     Indication: Epilepsy
     Dosage: 500MG (ORE 8) + 750MG (ORE 20)
     Route: 048
  6. FYCOMPA [Concomitant]
     Active Substance: PERAMPANEL
  7. Tifactor [Concomitant]

REACTIONS (3)
  - Leukopenia [Not Recovered/Not Resolved]
  - Neutropenia [Not Recovered/Not Resolved]
  - Anaemia [Not Recovered/Not Resolved]

NARRATIVE: CASE EVENT DATE: 20220208
